FAERS Safety Report 7195246-6 (Version None)
Quarter: 2010Q4

REPORT INFORMATION
  Report Type: 
  Country: None (occurrence: None)
  Receive Date: 20101223
  Receipt Date: 20100928
  Transmission Date: 20110411
  Serious: No
  Sender: FDA-Public Use
  Company Number: US-AMGEN-KDL441867

PATIENT

DRUGS (2)
  1. ENBREL [Suspect]
     Indication: RHEUMATOID ARTHRITIS
     Dosage: 50 MG, QWK
     Route: 058
     Dates: start: 20080120
  2. METHOTREXATE [Concomitant]
     Dosage: 2.5 MG, QWK
     Route: 048

REACTIONS (5)
  - HOT FLUSH [None]
  - HYPERHIDROSIS [None]
  - INJECTION SITE PAIN [None]
  - NEUTROPHIL COUNT ABNORMAL [None]
  - WHITE BLOOD CELL DISORDER [None]
